FAERS Safety Report 10155167 (Version 1)
Quarter: 2014Q2

REPORT INFORMATION
  Report Type: Spontaneous
  Country: US (occurrence: None)
  Receive Date: 20140505
  Receipt Date: 20140505
  Transmission Date: 20141212
  Serious: Yes (Hospitalization)
  Sender: FDA-Public Use
  Company Number: None

PATIENT
  Age: 69 Year
  Sex: Male

DRUGS (8)
  1. AFINITOR 10 MG DAILY [Suspect]
     Indication: PRODUCT USED FOR UNKNOWN INDICATION
     Dates: start: 20130208
  2. CARVEDILOL [Concomitant]
  3. METFORMIN HCL [Concomitant]
  4. LOVASTATIN [Concomitant]
  5. ADVAIR DISKUS [Concomitant]
  6. COMPAZINE [Concomitant]
  7. PROTONIX [Concomitant]
  8. ZOFRAN [Concomitant]

REACTIONS (3)
  - Pneumonia [None]
  - Stent placement [None]
  - Drug dose omission [None]
